FAERS Safety Report 18279346 (Version 1)
Quarter: 2020Q3

REPORT INFORMATION
  Report Type: Spontaneous
  Country: US (occurrence: US)
  Receive Date: 20200917
  Receipt Date: 20200917
  Transmission Date: 20201103
  Serious: No
  Sender: FDA-Public Use
  Company Number: US-TEVA-2020-US-1828053

PATIENT
  Age: 87 Year
  Sex: Female

DRUGS (2)
  1. FLOVENT [Concomitant]
     Active Substance: FLUTICASONE PROPIONATE
  2. ALBUTEROL SULFATE HFA [Suspect]
     Active Substance: ALBUTEROL SULFATE
     Dosage: PRIMING HER ALBUTEROL HFA INHALER 3 TIMES
     Route: 055
     Dates: start: 202001

REACTIONS (4)
  - Product substitution issue [Unknown]
  - Oral mucosal blistering [Recovered/Resolved]
  - Eye swelling [Recovered/Resolved]
  - Mouth swelling [Recovered/Resolved]

NARRATIVE: CASE EVENT DATE: 202001
